FAERS Safety Report 23982579 (Version 2)
Quarter: 2024Q3

REPORT INFORMATION
  Report Type: Spontaneous
  Country: US (occurrence: US)
  Receive Date: 20240617
  Receipt Date: 20240701
  Transmission Date: 20241016
  Serious: Yes (Death, Hospitalization, Other)
  Sender: TEVA
  Company Number: US-TEVA-VS-3203084

PATIENT
  Age: 73 Year
  Sex: Male

DRUGS (4)
  1. PREDNISONE [Suspect]
     Active Substance: PREDNISONE
     Indication: Chronic graft versus host disease
     Route: 065
  2. RUXOLITINIB [Suspect]
     Active Substance: RUXOLITINIB
     Indication: Chronic graft versus host disease
     Route: 065
  3. CEMIPLIMAB [Suspect]
     Active Substance: CEMIPLIMAB
     Indication: Squamous cell carcinoma of skin
     Dosage: LOW-DOSE
     Route: 065
  4. BELUMOSUDIL [Suspect]
     Active Substance: BELUMOSUDIL
     Indication: Chronic graft versus host disease
     Route: 065

REACTIONS (3)
  - Drug ineffective [Fatal]
  - Squamous cell carcinoma of skin [Unknown]
  - Hepatic failure [Fatal]
